FAERS Safety Report 9375328 (Version 1)
Quarter: 2013Q2

REPORT INFORMATION
  Report Type: Spontaneous
  Country: DE (occurrence: DE)
  Receive Date: 20130628
  Receipt Date: 20130628
  Transmission Date: 20140414
  Serious: Yes (Other)
  Sender: FDA-Public Use
  Company Number: DE-UCBSA-090270

PATIENT
  Age: 59 Year
  Sex: Male

DRUGS (2)
  1. LACOSAMIDE [Suspect]
     Indication: EPILEPSY
  2. LEVETIRACETAM [Suspect]
     Indication: EPILEPSY

REACTIONS (2)
  - Status epilepticus [Recovered/Resolved]
  - Overdose [Unknown]
